FAERS Safety Report 22832978 (Version 4)
Quarter: 2023Q4

REPORT INFORMATION
  Report Type: Spontaneous
  Country: US (occurrence: US)
  Receive Date: 20230817
  Receipt Date: 20231123
  Transmission Date: 20240110
  Serious: Yes (Other)
  Sender: FDA-Public Use
  Company Number: US-ABBVIE-5369821

PATIENT
  Sex: Female

DRUGS (1)
  1. LUPRON [Suspect]
     Active Substance: LEUPROLIDE ACETATE
     Indication: Product used for unknown indication
     Route: 030
     Dates: start: 2004, end: 2004

REACTIONS (48)
  - Musculoskeletal disorder [Unknown]
  - Diabetes mellitus [Unknown]
  - Angiopathy [Unknown]
  - Pancreatic injury [Unknown]
  - Alanine aminotransferase increased [Unknown]
  - Unevaluable event [Unknown]
  - Haemorrhage [Unknown]
  - Joint injury [Unknown]
  - Alopecia [Unknown]
  - Arthralgia [Unknown]
  - Hysterectomy [Unknown]
  - Cyst [Unknown]
  - Loss of personal independence in daily activities [Unknown]
  - Gastrointestinal injury [Unknown]
  - Back injury [Unknown]
  - Unevaluable event [Unknown]
  - Pain in extremity [Unknown]
  - Renal disorder [Unknown]
  - Bladder dysfunction [Unknown]
  - Eye disorder [Unknown]
  - Tooth loss [Unknown]
  - Uterine leiomyoma [Unknown]
  - Nervous system disorder [Unknown]
  - Bone disorder [Unknown]
  - Vasoconstriction [Unknown]
  - Corneal pigmentation [Unknown]
  - Blindness [Unknown]
  - Cataract [Unknown]
  - Neuropathy peripheral [Unknown]
  - Arthropathy [Unknown]
  - Illness [Unknown]
  - Adverse drug reaction [Unknown]
  - Liver injury [Unknown]
  - Limb injury [Unknown]
  - Haemorrhage [Unknown]
  - Injury [Unknown]
  - Renal injury [Unknown]
  - Skeletal injury [Unknown]
  - Nerve injury [Unknown]
  - Back disorder [Unknown]
  - Splenic injury [Unknown]
  - Unevaluable event [Unknown]
  - Visual impairment [Unknown]
  - Alanine aminotransferase increased [Unknown]
  - Pain [Unknown]
  - Unevaluable event [Unknown]
  - Tooth disorder [Unknown]
  - Stress [Unknown]
